FAERS Safety Report 4372009-8 (Version None)
Quarter: 2004Q2

REPORT INFORMATION
  Report Type: 
  Country: None (occurrence: None)
  Receive Date: 20040601
  Receipt Date: 20040517
  Transmission Date: 20050107
  Serious: Yes (Other)
  Sender: FDA-Public Use
  Company Number: HQWYE930217MAY04

PATIENT
  Sex: Female

DRUGS (4)
  1. EFFEXOR [Suspect]
     Indication: MAJOR DEPRESSION
     Dosage: 375 MG  : 225 MG, ORAL
     Route: 048
     Dates: end: 20040501
  2. EFFEXOR [Suspect]
     Indication: MAJOR DEPRESSION
     Dosage: 375 MG  : 225 MG, ORAL
     Route: 048
     Dates: start: 20040501
  3. SEROQUEL [Concomitant]
  4. WELLBUTRIN [Concomitant]

REACTIONS (7)
  - CONDITION AGGRAVATED [None]
  - DEPRESSION [None]
  - DRUG WITHDRAWAL SYNDROME [None]
  - FAMILY STRESS [None]
  - MEDICATION ERROR [None]
  - SELF MUTILATION [None]
  - UNDERDOSE [None]
